FAERS Safety Report 7827184-7 (Version None)
Quarter: 2011Q4

REPORT INFORMATION
  Report Type: 
  Country: None (occurrence: None)
  Receive Date: 20111019
  Receipt Date: 20111019
  Transmission Date: 20120403
  Serious: Yes (Hospitalization, Other)
  Sender: FDA-Public Use
  Company Number: None

PATIENT
  Age: 84 Year
  Sex: Female
  Weight: 51.7101 kg

DRUGS (2)
  1. METOPROLOL TARTRATE [Suspect]
     Indication: CARDIAC DISORDER
     Dosage: 1/2 TAB (12.5 MG) 2X DAY 25 MG 2X DAILY ; MID AUG-SEPT 12.5 MG 2X DAILY
     Dates: start: 20110801, end: 20110901
  2. METOPROLOL TARTRATE [Suspect]
     Indication: CARDIAC DISORDER
     Dosage: 1/2 TAB (12.5 MG) 2X DAY 25 MG 2X DAILY ; MID AUG-SEPT 12.5 MG 2X DAILY
     Dates: start: 20110701, end: 20110801

REACTIONS (5)
  - FALL [None]
  - EYE DISORDER [None]
  - HIP FRACTURE [None]
  - DISORIENTATION [None]
  - MENTAL STATUS CHANGES [None]
